FAERS Safety Report 8540451-7 (Version None)
Quarter: 2012Q3

REPORT INFORMATION
  Report Type: 
  Country: None (occurrence: None)
  Receive Date: 20120726
  Receipt Date: 20110715
  Transmission Date: 20120928
  Serious: No
  Sender: FDA-Public Use
  Company Number: US-ASTRAZENECA-2011SE42683

PATIENT
  Age: 38 Year
  Sex: Female
  Weight: 67.1 kg

DRUGS (6)
  1. LAMICTAL [Concomitant]
  2. DIAZEPAM [Concomitant]
  3. PROPANOLOL LA [Concomitant]
  4. SEROQUEL XR [Suspect]
     Indication: BIPOLAR DISORDER
     Route: 048
  5. LITHIUM CARBONATE [Concomitant]
  6. TEGRETOL [Concomitant]

REACTIONS (2)
  - MANIA [None]
  - DRUG DOSE OMISSION [None]
